FAERS Safety Report 8425528-9 (Version None)
Quarter: 2012Q2

REPORT INFORMATION
  Report Type: 
  Country: None (occurrence: None)
  Receive Date: 20120605
  Receipt Date: 20120605
  Transmission Date: 20120825
  Serious: Yes (Life-Threatening, Disabling)
  Sender: FDA-Public Use
  Company Number: None

PATIENT
  Sex: Male
  Weight: 79.3795 kg

DRUGS (1)
  1. FORTEO [Suspect]
     Indication: OSTEOPOROSIS
     Dosage: OSTEOPOROSIS 24/7 20 MCG PER DOSE
     Dates: start: 20110101, end: 20120101

REACTIONS (2)
  - DYSPNOEA [None]
  - ABASIA [None]
